FAERS Safety Report 5737298-3 (Version None)
Quarter: 2008Q2

REPORT INFORMATION
  Report Type: 
  Country: None (occurrence: None)
  Receive Date: 20080513
  Receipt Date: 20080513
  Transmission Date: 20081010
  Serious: Yes (Disabling, Other)
  Sender: FDA-Public Use
  Company Number: None

PATIENT
  Age: 84 Year
  Sex: Male
  Weight: 56.6996 kg

DRUGS (2)
  1. PREDNISONE TAB [Suspect]
     Indication: ASTHENIA
     Dosage: ONCE A DAY PO
     Route: 048
     Dates: start: 20031101, end: 20080501
  2. PREDNISONE TAB [Suspect]
     Indication: CORONARY ARTERY BYPASS
     Dosage: ONCE A DAY PO
     Route: 048
     Dates: start: 20031101, end: 20080501

REACTIONS (2)
  - SKIN DISCOLOURATION [None]
  - UNEVALUABLE EVENT [None]
